FAERS Safety Report 23886767 (Version 2)
Quarter: 2024Q3

REPORT INFORMATION
  Report Type: Report from Study
  Country: US (occurrence: US)
  Receive Date: 20240522
  Receipt Date: 20240716
  Transmission Date: 20241016
  Serious: Yes (Other)
  Sender: JOHNSON AND JOHNSON
  Company Number: US-JNJFOC-20240542201

PATIENT
  Age: 36 Year
  Sex: Male

DRUGS (11)
  1. SPRAVATO [Suspect]
     Active Substance: ESKETAMINE
     Indication: Depression
     Dosage: 56 MG, 1 TOTAL DOSE
     Dates: start: 20240506, end: 20240506
  2. SPRAVATO [Suspect]
     Active Substance: ESKETAMINE
     Dosage: 84 MG, 1 TOTAL DOSE, RECENT DOSE
     Dates: start: 20240508, end: 20240508
  3. SPRAVATO [Suspect]
     Active Substance: ESKETAMINE
     Dates: start: 2024
  4. DESVENLAFAXINE SUCCINATE [Concomitant]
     Active Substance: DESVENLAFAXINE SUCCINATE
     Indication: Depression
     Dosage: ER
     Route: 048
     Dates: start: 20240506
  5. LITHIUM CARBONATE [Concomitant]
     Active Substance: LITHIUM CARBONATE
     Indication: Drug therapy
     Route: 048
     Dates: start: 20240503
  6. FISH OIL [Concomitant]
     Active Substance: FISH OIL
     Indication: Nutritional supplementation
     Route: 048
  7. TRIMETHYLGLYCINE [Concomitant]
     Indication: Nutritional supplementation
     Route: 048
     Dates: start: 20240401
  8. ASCORBIC ACID [Concomitant]
     Active Substance: ASCORBIC ACID
     Indication: Nutritional supplementation
     Route: 048
     Dates: start: 20240122
  9. LEVOMEFOLIC ACID [Concomitant]
     Active Substance: LEVOMEFOLIC ACID
     Route: 048
  10. MAGNESIUM [Concomitant]
     Active Substance: MAGNESIUM
  11. VITAMIN D3 [Concomitant]
     Active Substance: CHOLECALCIFEROL
     Dates: start: 20240122

REACTIONS (4)
  - Syncope [Recovered/Resolved]
  - Psychogenic seizure [Recovered/Resolved]
  - Anxiety [Recovered/Resolved]
  - Dissociation [Recovered/Resolved]

NARRATIVE: CASE EVENT DATE: 20240508
